FAERS Safety Report 14823172 (Version 23)
Quarter: 2020Q2

REPORT INFORMATION
  Report Type: Spontaneous
  Country: US (occurrence: US)
  Receive Date: 20180427
  Receipt Date: 20200630
  Transmission Date: 20200713
  Serious: Yes (Hospitalization)
  Sender: FDA-Public Use
  Company Number: US-ACTELION-A-NJ2018-171361

PATIENT
  Age: 58 Year
  Sex: Female
  Weight: 74.83 kg

DRUGS (12)
  1. VELETRI [Suspect]
     Active Substance: EPOPROSTENOL
     Dosage: 21 NG/KG, PER MIN
     Route: 042
  2. VELETRI [Suspect]
     Active Substance: EPOPROSTENOL
     Dosage: 27 NG/KG, PER MIN
     Route: 042
  3. OXYGEN. [Concomitant]
     Active Substance: OXYGEN
  4. VELETRI [Suspect]
     Active Substance: EPOPROSTENOL
     Dosage: 6 NG/KG, PER MIN
     Route: 042
  5. VELETRI [Suspect]
     Active Substance: EPOPROSTENOL
     Dosage: 11 NG/KG, PER MIN
     Route: 042
  6. VELETRI [Suspect]
     Active Substance: EPOPROSTENOL
     Dosage: 17 NG/KG, PER MIN
     Route: 042
  7. VELETRI [Suspect]
     Active Substance: EPOPROSTENOL
     Dosage: 20 NG/KG, PER MIN
     Route: 042
  8. VELETRI [Suspect]
     Active Substance: EPOPROSTENOL
     Dosage: 28 NG/KG, PER MIN
     Route: 042
  9. VELETRI [Suspect]
     Active Substance: EPOPROSTENOL
     Dosage: 14 NG/KG, PER MIN
     Route: 042
     Dates: start: 20180526
  10. VELETRI [Suspect]
     Active Substance: EPOPROSTENOL
     Dosage: 30.7 NG/KG, PER MIN
     Route: 042
  11. VELETRI [Suspect]
     Active Substance: EPOPROSTENOL
     Indication: PULMONARY ARTERIAL HYPERTENSION
     Dosage: 30.7 NG/KG, PER MIN
     Route: 042
  12. VELETRI [Suspect]
     Active Substance: EPOPROSTENOL
     Dosage: 23 NG/KG, PER MIN
     Route: 042

REACTIONS (30)
  - Headache [Unknown]
  - Arthralgia [Unknown]
  - Catheter site rash [Unknown]
  - Weight decreased [Unknown]
  - Pain in jaw [Recovering/Resolving]
  - Erythema [Unknown]
  - Pain in extremity [Not Recovered/Not Resolved]
  - Myalgia [Not Recovered/Not Resolved]
  - Catheter site erythema [Unknown]
  - Palpitations [Unknown]
  - Viral infection [Unknown]
  - Oxygen consumption increased [Recovering/Resolving]
  - Dyspnoea [Unknown]
  - Infusion site erythema [Unknown]
  - Swelling [Not Recovered/Not Resolved]
  - Neuropathy peripheral [Unknown]
  - Arrhythmia [Unknown]
  - Nausea [Unknown]
  - Alopecia [Unknown]
  - Dyspnoea exertional [Unknown]
  - Fluid retention [Unknown]
  - Malaise [Recovering/Resolving]
  - Pain [Unknown]
  - Heart rate increased [Unknown]
  - Infusion site irritation [Unknown]
  - Catheter site pruritus [Unknown]
  - Unevaluable event [Unknown]
  - Muscle spasms [Unknown]
  - Flushing [Unknown]
  - Chest pain [Unknown]

NARRATIVE: CASE EVENT DATE: 20180526
